FAERS Safety Report 10026756 (Version 2)
Quarter: 2014Q2

REPORT INFORMATION
  Report Type: Spontaneous
  Country: DE (occurrence: DE)
  Receive Date: 20140321
  Receipt Date: 20140522
  Transmission Date: 20141212
  Serious: Yes (Other)
  Sender: FDA-Public Use
  Company Number: DE-UCBSA-114772

PATIENT
  Age: 61 Year
  Sex: Female

DRUGS (6)
  1. LEVETIRACETAM [Suspect]
     Dates: start: 201403
  2. LEVETIRACETAM [Suspect]
     Dosage: 500MG IN THE MORNING AND 250MG IN THE EVENING
  3. LEVETIRACETAM [Suspect]
     Dosage: 250MG IN THE MORNING AND IN THE EVENING
  4. BISOPROLOL [Concomitant]
  5. RAMILICH [Concomitant]
  6. PANTOPRAZOLE [Concomitant]

REACTIONS (2)
  - Hypotension [Unknown]
  - Somnolence [Unknown]
